FAERS Safety Report 8970976 (Version 1)
Quarter: 2012Q4

REPORT INFORMATION
  Report Type: 
  Country: US (occurrence: US)
  Receive Date: 20121218
  Receipt Date: 20121218
  Transmission Date: 20130627
  Serious: No
  Sender: FDA-Public Use
  Company Number: US-BRISTOL-MYERS SQUIBB COMPANY-17012386

PATIENT
  Age: 3 None
  Sex: Female

DRUGS (4)
  1. ABILIFY [Suspect]
     Indication: BIPOLAR DISORDER
     Dosage: 1 DF; 10-15 mg
  2. LITHIUM [Suspect]
  3. WELLBUTRIN [Suspect]
  4. LAMICTAL [Suspect]

REACTIONS (1)
  - Weight increased [Unknown]
